FAERS Safety Report 20650492 (Version 1)
Quarter: 2022Q1

REPORT INFORMATION
  Report Type: Report from Study
  Country: US (occurrence: US)
  Receive Date: 20220329
  Receipt Date: 20220329
  Transmission Date: 20220423
  Serious: Yes (Other)
  Sender: FDA-Public Use
  Company Number: US-OTSUKA-2022_020662

PATIENT
  Sex: Female

DRUGS (1)
  1. CEDAZURIDINE\DECITABINE [Suspect]
     Active Substance: CEDAZURIDINE\DECITABINE
     Indication: Refractory anaemia with an excess of blasts
     Dosage: 35 MG, QD (FOR 5 DAYS OF 28 DAY CYCLE)
     Route: 048

REACTIONS (1)
  - Bone marrow transplant [Unknown]
